FAERS Safety Report 21170038 (Version 1)
Quarter: 2022Q3

REPORT INFORMATION
  Report Type: Spontaneous
  Country: US (occurrence: US)
  Receive Date: 20220804
  Receipt Date: 20220804
  Transmission Date: 20221026
  Serious: Yes (Death, Life-Threatening, Other)
  Sender: FDA-Public Use
  Company Number: US-AMGEN-USASP2022130462

PATIENT

DRUGS (1)
  1. EPOGEN [Suspect]
     Active Substance: ERYTHROPOIETIN
     Indication: Hypoxic ischaemic encephalopathy neonatal
     Dosage: 4000 U PER MILLILITER
     Route: 065

REACTIONS (25)
  - Death [Fatal]
  - Adverse event [Unknown]
  - Motor dysfunction [Unknown]
  - Visual impairment [Unknown]
  - Hypoacusis [Unknown]
  - Brain injury [Unknown]
  - Venous thrombosis [Unknown]
  - Arterial thrombosis [Unknown]
  - Disseminated intravascular coagulation [Unknown]
  - Pulmonary hypertension [Unknown]
  - Haemorrhage intracranial [Unknown]
  - Cardio-respiratory arrest [Unknown]
  - Meconium aspiration syndrome [Unknown]
  - Cardiac dysfunction [Unknown]
  - Arrhythmia [Unknown]
  - Thrombocytopenia [Unknown]
  - Neutropenia [Unknown]
  - Acute kidney injury [Unknown]
  - Liver injury [Unknown]
  - Cerebral palsy [Unknown]
  - Aggression [Unknown]
  - Hypotension [Unknown]
  - Cognitive disorder [Unknown]
  - Hypertension [Unknown]
  - Seizure [Unknown]
